FAERS Safety Report 9737012 (Version 2)
Quarter: 2013Q4

REPORT INFORMATION
  Report Type: Spontaneous
  Country: US (occurrence: US)
  Receive Date: 20131206
  Receipt Date: 20131206
  Transmission Date: 20140711
  Serious: No
  Sender: FDA-Public Use
  Company Number: US-GILEAD-2009-0023172

PATIENT
  Sex: Female
  Weight: 88 kg

DRUGS (6)
  1. LETAIRIS [Suspect]
     Indication: PULMONARY ARTERIAL HYPERTENSION
     Route: 048
     Dates: start: 20090630
  2. BUMEX [Concomitant]
  3. SPIRONOLACTONE [Concomitant]
  4. L-THYROXINE [Concomitant]
  5. AMBIEN [Concomitant]
  6. CELEBREX [Concomitant]

REACTIONS (4)
  - Chest discomfort [Unknown]
  - Throat tightness [Unknown]
  - Abdominal pain upper [Unknown]
  - Palpitations [Unknown]
